FAERS Safety Report 6803756-3 (Version None)
Quarter: 2010Q2

REPORT INFORMATION
  Report Type: 
  Country: None (occurrence: None)
  Receive Date: 20100628
  Receipt Date: 20100622
  Transmission Date: 20101027
  Serious: Yes (Hospitalization)
  Sender: FDA-Public Use
  Company Number: US-GILEAD-2010-0027616

PATIENT
  Sex: Female
  Weight: 61.29 kg

DRUGS (4)
  1. LETAIRIS [Suspect]
     Indication: PULMONARY ARTERIAL HYPERTENSION
     Route: 048
     Dates: start: 20081108
  2. NORVASC [Concomitant]
  3. CALCIUM D TAB [Concomitant]
  4. LASIX [Concomitant]

REACTIONS (1)
  - LOCALISED INTRAABDOMINAL FLUID COLLECTION [None]
